FAERS Safety Report 21055294 (Version 3)
Quarter: 2022Q4

REPORT INFORMATION
  Report Type: Other
  Country: DE (occurrence: DE)
  Receive Date: 20220708
  Receipt Date: 20221117
  Transmission Date: 20230113
  Serious: No
  Sender: FDA-Public Use
  Company Number: DE-ROCHE-3133792

PATIENT
  Age: 44 Year
  Sex: Female
  Weight: 61 kg

DRUGS (24)
  1. OCREVUS [Suspect]
     Active Substance: OCRELIZUMAB
     Indication: Relapsing-remitting multiple sclerosis
     Route: 042
     Dates: start: 20200206
  2. OCREVUS [Suspect]
     Active Substance: OCRELIZUMAB
     Route: 042
     Dates: start: 20200220
  3. OCREVUS [Suspect]
     Active Substance: OCRELIZUMAB
     Dosage: 2X 10 MILLILITRES
     Route: 042
     Dates: start: 20200813
  4. OCREVUS [Suspect]
     Active Substance: OCRELIZUMAB
     Route: 042
     Dates: start: 20210715
  5. COMIRNATY [Suspect]
     Active Substance: TOZINAMERAN
     Indication: COVID-19 immunisation
     Dosage: NEXT DOSE ON: 28/MAY/2021
     Route: 065
     Dates: start: 20210428
  6. NABIXIMOLS [Suspect]
     Active Substance: NABIXIMOLS
     Indication: Product used for unknown indication
     Dosage: 2-2-2, 2 PUFFS EACH
     Route: 065
     Dates: start: 202007
  7. OXYCODONE [Suspect]
     Active Substance: OXYCODONE
     Indication: Pain
     Dosage: TOGETHER WITH NALOXON
     Route: 065
  8. OXYCODONE [Suspect]
     Active Substance: OXYCODONE
     Route: 065
     Dates: end: 20210513
  9. NALOXONE HYDROCHLORIDE [Suspect]
     Active Substance: NALOXONE HYDROCHLORIDE
     Indication: Product used for unknown indication
     Dosage: TOGETHER WITH OXYCODON
     Route: 065
     Dates: end: 20210513
  10. CORTISONE [Suspect]
     Active Substance: CORTISONE
     Indication: Product used for unknown indication
     Dosage: 1000 MG, 3X/DAY
     Route: 065
  11. PANTOPRAZOLE SODIUM [Suspect]
     Active Substance: PANTOPRAZOLE SODIUM
     Indication: Product used for unknown indication
     Route: 065
  12. HYDROCORTISONE [Suspect]
     Active Substance: HYDROCORTISONE
     Indication: Product used for unknown indication
     Route: 065
  13. DULOXETINE [Concomitant]
     Active Substance: DULOXETINE
     Dosage: 1-0-1
  14. ACETAMINOPHEN [Concomitant]
     Active Substance: ACETAMINOPHEN
     Dosage: UP TO 3 TIMES PER DAY
  15. DESOGESTREL [Concomitant]
     Active Substance: DESOGESTREL
  16. MIRTAZAPINE [Concomitant]
     Active Substance: MIRTAZAPINE
  17. AMITRIPTYLINE [Concomitant]
     Active Substance: AMITRIPTYLINE
     Indication: Pain
     Dosage: 0-0-1
  18. AMITRIPTYLINE [Concomitant]
     Active Substance: AMITRIPTYLINE
     Route: 048
     Dates: start: 2019
  19. AMITRIPTYLINE [Concomitant]
     Active Substance: AMITRIPTYLINE
     Dosage: 0-0-1
  20. MOVICOL [Concomitant]
     Active Substance: POLYETHYLENE GLYCOL 3350\POTASSIUM CHLORIDE\SODIUM BICARBONATE\SODIUM CHLORIDE
     Dosage: 1-0-0
  21. PREGABALIN [Concomitant]
     Active Substance: PREGABALIN
     Indication: Pain
  22. PREGABALIN [Concomitant]
     Active Substance: PREGABALIN
  23. PREGABALIN [Concomitant]
     Active Substance: PREGABALIN
     Dosage: 2-2-2
  24. PREGABALIN [Concomitant]
     Active Substance: PREGABALIN
     Route: 048
     Dates: start: 2019

REACTIONS (11)
  - Trigeminal neuralgia [Recovering/Resolving]
  - Pain [Unknown]
  - Sneezing [Unknown]
  - Nasopharyngitis [Unknown]
  - Chills [Unknown]
  - SARS-CoV-2 test positive [Unknown]
  - Fatigue [Not Recovered/Not Resolved]
  - Gait disturbance [Recovered/Resolved]
  - Muscle spasms [Recovered/Resolved]
  - Depression [Unknown]
  - Fatigue [Unknown]

NARRATIVE: CASE EVENT DATE: 20220627
